FAERS Safety Report 8886402 (Version 1)
Quarter: 2012Q4

REPORT INFORMATION
  Report Type: 
  Country: PE (occurrence: PE)
  Receive Date: 20121105
  Receipt Date: 20121105
  Transmission Date: 20130627
  Serious: Yes (Hospitalization, Other)
  Sender: FDA-Public Use
  Company Number: PE-GLAXOSMITHKLINE-A0999615A

PATIENT
  Sex: Female

DRUGS (1)
  1. SERETIDE [Suspect]
     Indication: ASTHMA
     Dosage: 2PUFF per day
     Route: 055
     Dates: start: 20090903, end: 2010

REACTIONS (2)
  - Lung neoplasm malignant [Unknown]
  - Lung operation [Recovering/Resolving]
